FAERS Safety Report 6972074-5 (Version None)
Quarter: 2010Q3

REPORT INFORMATION
  Report Type: 
  Country: None (occurrence: None)
  Receive Date: 20100909
  Receipt Date: 20100831
  Transmission Date: 20110219
  Serious: Yes (Hospitalization)
  Sender: FDA-Public Use
  Company Number: US-BIOGENIDEC-2010BI030673

PATIENT
  Age: 62 Year
  Sex: Female

DRUGS (1)
  1. AVONEX [Suspect]
     Indication: MULTIPLE SCLEROSIS
     Route: 030

REACTIONS (14)
  - ABASIA [None]
  - ANXIETY [None]
  - BACK INJURY [None]
  - BLOOD PRESSURE ABNORMAL [None]
  - BONE DISORDER [None]
  - CONTUSION [None]
  - FALL [None]
  - FEAR [None]
  - INTERVERTEBRAL DISC DISPLACEMENT [None]
  - JOINT INJURY [None]
  - LIGAMENT RUPTURE [None]
  - MULTIPLE SCLEROSIS RELAPSE [None]
  - MUSCLE RUPTURE [None]
  - TENDON RUPTURE [None]
